FAERS Safety Report 6136850-3 (Version None)
Quarter: 2009Q1

REPORT INFORMATION
  Report Type: 
  Country: None (occurrence: None)
  Receive Date: 20090330
  Receipt Date: 20090317
  Transmission Date: 20090719
  Serious: Yes (Death, Hospitalization)
  Sender: FDA-Public Use
  Company Number: IN-ELI_LILLY_AND_COMPANY-IN200903001504

PATIENT
  Age: 61 Year
  Sex: Female

DRUGS (2)
  1. FORTEO [Suspect]
     Indication: OSTEOPOROSIS
     Dosage: 20 UG, DAILY (1/D)
     Route: 058
     Dates: start: 20080901, end: 20090224
  2. GLUCOCORTICOIDS [Concomitant]
     Indication: RESPIRATORY DISORDER
     Dosage: UNK, UNKNOWN
     Route: 065

REACTIONS (3)
  - DEATH [None]
  - LOSS OF CONSCIOUSNESS [None]
  - RESPIRATORY DISORDER [None]
